FAERS Safety Report 13498562 (Version 2)
Quarter: 2017Q3

REPORT INFORMATION
  Report Type: Spontaneous
  Country: US (occurrence: US)
  Receive Date: 20170501
  Receipt Date: 20170829
  Transmission Date: 20171127
  Serious: Yes (Life-Threatening, Hospitalization, Other)
  Sender: FDA-Public Use
  Company Number: US-SUN PHARMACEUTICAL INDUSTRIES LTD-2017US-139482

PATIENT
  Age: 14 Year
  Sex: Female

DRUGS (3)
  1. VENLAFAXINE [Suspect]
     Active Substance: VENLAFAXINE HYDROCHLORIDE
     Indication: PRODUCT USED FOR UNKNOWN INDICATION
     Dosage: UNK
     Route: 048
     Dates: start: 201504
  2. BUPROPION. [Suspect]
     Active Substance: BUPROPION
     Indication: PRODUCT USED FOR UNKNOWN INDICATION
     Dosage: UNK
     Route: 048
     Dates: start: 201504
  3. CYCLOBENZAPRINE. [Suspect]
     Active Substance: CYCLOBENZAPRINE
     Indication: PRODUCT USED FOR UNKNOWN INDICATION
     Dosage: UNK
     Route: 048
     Dates: start: 201504

REACTIONS (10)
  - Leukocytosis [Recovering/Resolving]
  - Serotonin syndrome [Recovering/Resolving]
  - Anaemia [Recovering/Resolving]
  - Encephalopathy [Recovering/Resolving]
  - Unresponsive to stimuli [Recovering/Resolving]
  - Decorticate posture [Recovering/Resolving]
  - Suicide attempt [Recovering/Resolving]
  - Atelectasis [Recovering/Resolving]
  - Intentional product misuse [Recovering/Resolving]
  - Generalised tonic-clonic seizure [Recovering/Resolving]

NARRATIVE: CASE EVENT DATE: 201504
